FAERS Safety Report 4690649-3 (Version None)
Quarter: 2005Q2

REPORT INFORMATION
  Report Type: 
  Country: None (occurrence: None)
  Receive Date: 20050615
  Receipt Date: 20050519
  Transmission Date: 20051028
  Serious: Yes (Other)
  Sender: FDA-Public Use
  Company Number: JP-GLAXOSMITHKLINE-B0381729A

PATIENT
  Age: 23 Year
  Sex: Female

DRUGS (2)
  1. VALTREX [Suspect]
     Indication: KAPOSI'S VARICELLIFORM ERUPTION
     Dosage: 500MG TWICE PER DAY
     Route: 048
     Dates: start: 20050512, end: 20050514
  2. MEIACT [Suspect]
     Dosage: 300MG PER DAY
     Route: 048
     Dates: start: 20050509, end: 20050511

REACTIONS (6)
  - ABDOMINAL PAIN [None]
  - C-REACTIVE PROTEIN INCREASED [None]
  - CLOSTRIDIUM COLITIS [None]
  - DIARRHOEA [None]
  - PYREXIA [None]
  - WHITE BLOOD CELL COUNT INCREASED [None]
